FAERS Safety Report 9296962 (Version 1)
Quarter: 2013Q2

REPORT INFORMATION
  Report Type: Report from Study
  Country: ES (occurrence: ES)
  Receive Date: 20130518
  Receipt Date: 20130518
  Transmission Date: 20140414
  Serious: Yes (Other)
  Sender: FDA-Public Use
  Company Number: ES-ROCHE-CID000000002418539

PATIENT
  Age: 76 Year
  Sex: Female

DRUGS (10)
  1. CELLCEPT [Suspect]
     Indication: RENAL TRANSPLANT
     Route: 065
     Dates: start: 2007
  2. CELLCEPT [Suspect]
     Dosage: POST 2ND RENAL TRANSPLANT
     Route: 065
  3. METHYLPREDNISOLONE [Concomitant]
     Route: 065
  4. METHYLPREDNISOLONE [Concomitant]
     Route: 065
  5. CYCLOSPORINE [Concomitant]
     Route: 065
  6. CYCLOSPORINE [Concomitant]
     Route: 065
  7. BASILIXIMAB [Concomitant]
     Route: 065
  8. TACROLIMUS [Concomitant]
     Route: 065
  9. PREDNISONE [Concomitant]
     Route: 065
  10. MUROMONAB-CD3 [Concomitant]
     Route: 065

REACTIONS (1)
  - Transplant rejection [Unknown]
